FAERS Safety Report 5612772-9 (Version None)
Quarter: 2008Q1

REPORT INFORMATION
  Report Type: 
  Country: None (occurrence: None)
  Receive Date: 20080204
  Receipt Date: 20080123
  Transmission Date: 20080703
  Serious: Yes (Hospitalization)
  Sender: FDA-Public Use
  Company Number: CH-WYE-G00945508

PATIENT
  Age: 24 Year
  Sex: Male

DRUGS (4)
  1. EFFEXOR [Suspect]
     Indication: DEPRESSION
     Route: 048
     Dates: start: 20070201
  2. VOLTAREN [Concomitant]
     Dosage: IRREGULARLY AS NECESSARY UP TO 50 MG
     Dates: start: 20071004, end: 20071018
  3. TRAZODONE HCL [Suspect]
     Route: 048
     Dates: start: 20070201, end: 20070926
  4. TRAZODONE HCL [Suspect]
     Route: 048
     Dates: start: 20070927, end: 20071018

REACTIONS (2)
  - DRUG EFFECT DECREASED [None]
  - PRIAPISM [None]
